FAERS Safety Report 18534148 (Version 4)
Quarter: 2022Q4

REPORT INFORMATION
  Report Type: Report from Study
  Country: US (occurrence: US)
  Receive Date: 20201123
  Receipt Date: 20221222
  Transmission Date: 20230113
  Serious: Yes (Other)
  Sender: FDA-Public Use
  Company Number: US-PFIZER INC-2020443927

PATIENT
  Age: 53 Year
  Sex: Male
  Weight: 136.08 kg

DRUGS (2)
  1. PHENYTOIN SODIUM [Suspect]
     Active Substance: PHENYTOIN SODIUM
     Dosage: UNK
     Route: 065
  2. DILANTIN [Suspect]
     Active Substance: PHENYTOIN
     Dosage: 100 MILLIGRAM, 6XD, TAKE 3 CAPSULES TWICE A DAY
     Route: 065

REACTIONS (1)
  - Seizure [Unknown]
